FAERS Safety Report 8373874-X (Version None)
Quarter: 2012Q2

REPORT INFORMATION
  Report Type: 
  Country: None (occurrence: None)
  Receive Date: 20120517
  Receipt Date: 20120502
  Transmission Date: 20120825
  Serious: Yes (Other)
  Sender: FDA-Public Use
  Company Number: MCA-N-12-044

PATIENT
  Age: 66 Year
  Sex: Female

DRUGS (3)
  1. BECLOMETHASONE DIPROPIONATE [Concomitant]
  2. LEVOFLOXACIN [Suspect]
     Indication: PNEUMONIA
     Dosage: 500 G, BID
  3. ALBUTEROL [Concomitant]

REACTIONS (2)
  - PIGMENTATION DISORDER [None]
  - SKIN LESION [None]
